FAERS Safety Report 7341905-1 (Version None)
Quarter: 2011Q1

REPORT INFORMATION
  Report Type: 
  Country: None (occurrence: None)
  Receive Date: 20110309
  Receipt Date: 20110210
  Transmission Date: 20110831
  Serious: No
  Sender: FDA-Public Use
  Company Number: US-B.I. PHARMACEUTICALS,INC./RIDGEFIELD-2011-BP-05263BP

PATIENT
  Sex: Female

DRUGS (5)
  1. DIOVAN HCT [Concomitant]
     Indication: HYPERTENSION
     Dosage: 160 MG
     Route: 048
  2. DILTIAZEM [Concomitant]
     Indication: ATRIAL FIBRILLATION
     Dosage: 360 MG
     Route: 048
  3. SYNTHROID [Concomitant]
     Indication: HYPOTHYROIDISM
     Dosage: 175 MG
     Route: 048
  4. PRADAXA [Suspect]
     Indication: ATRIAL FIBRILLATION
     Dosage: 150 MG
     Route: 048
     Dates: start: 20101201
  5. DEXEDRINE [Concomitant]
     Indication: NARCOLEPSY
     Dosage: 30 MG
     Route: 048

REACTIONS (5)
  - LYMPHOEDEMA [None]
  - PRODUCTIVE COUGH [None]
  - COUGH [None]
  - SKIN SWELLING [None]
  - HEART RATE INCREASED [None]
